FAERS Safety Report 13991252 (Version 1)
Quarter: 2017Q3

REPORT INFORMATION
  Report Type: Spontaneous
  Country: US (occurrence: None)
  Receive Date: 20170920
  Receipt Date: 20170920
  Transmission Date: 20171128
  Serious: No
  Sender: FDA-Public Use
  Company Number: None

PATIENT
  Age: 60 Year
  Sex: Male

DRUGS (1)
  1. CYCLOPHOSPHAMIDE CAP 50 MG [Suspect]
     Active Substance: CYCLOPHOSPHAMIDE

REACTIONS (3)
  - Constipation [None]
  - Diarrhoea [None]
  - Flatulence [None]

NARRATIVE: CASE EVENT DATE: 20170920
